FAERS Safety Report 5846001-8 (Version None)
Quarter: 2008Q3

REPORT INFORMATION
  Report Type: 
  Country: None (occurrence: None)
  Receive Date: 20080813
  Receipt Date: 20080806
  Transmission Date: 20090109
  Serious: Yes (Other)
  Sender: FDA-Public Use
  Company Number: CHPA2008US13176

PATIENT
  Age: 37 Year
  Sex: Male
  Weight: 95.2 kg

DRUGS (1)
  1. MAALOX MS TOTAL STOMACH RELIEF [Suspect]
     Indication: STOMACH DISCOMFORT
     Dosage: 6 TSP, QD, ORAL
     Route: 048
     Dates: start: 20080805

REACTIONS (2)
  - FAECES DISCOLOURED [None]
  - HAEMATOCHEZIA [None]
